FAERS Safety Report 9358415 (Version 3)
Quarter: 2013Q3

REPORT INFORMATION
  Report Type: Report from Study
  Country: GB (occurrence: GB)
  Receive Date: 20130620
  Receipt Date: 20130701
  Transmission Date: 20140515
  Serious: Yes (Hospitalization)
  Sender: FDA-Public Use
  Company Number: GB-GLAXOSMITHKLINE-B0900130A

PATIENT
  Age: 73 Year
  Sex: Male
  Weight: 98 kg

DRUGS (15)
  1. OFATUMUMAB [Suspect]
     Indication: CHRONIC LYMPHOCYTIC LEUKAEMIA
     Route: 042
     Dates: start: 20130509
  2. CHLORAMBUCIL [Suspect]
     Indication: CHRONIC LYMPHOCYTIC LEUKAEMIA
     Route: 048
     Dates: start: 20130509
  3. PARACETAMOL [Concomitant]
     Route: 048
     Dates: start: 20130509
  4. CHLORPHENIRAMINE [Concomitant]
     Route: 042
     Dates: start: 20130509
  5. PREDNISOLONE [Concomitant]
     Route: 048
     Dates: start: 20130508
  6. ALLOPURINOL [Concomitant]
  7. METOCLOPRAMIDE [Concomitant]
     Dosage: 10MG THREE TIMES PER DAY
     Dates: start: 20130321
  8. ACICLOVIR [Concomitant]
     Route: 048
     Dates: start: 20121213
  9. G-CSF [Concomitant]
  10. FLUOXETINE [Concomitant]
     Indication: DEPRESSION
     Dosage: 20MG PER DAY
     Route: 048
  11. BISOPROLOL [Concomitant]
     Indication: HYPERTENSION
     Dosage: 10MG PER DAY
     Route: 048
  12. TAMSULOSIN [Concomitant]
     Indication: PROSTATISM
     Dosage: 400MCG PER DAY
     Route: 048
  13. LANSOPRAZOLE [Concomitant]
     Indication: PROPHYLAXIS
     Dosage: 300MG PER DAY
     Route: 048
  14. DAPSONE [Concomitant]
     Indication: PROPHYLAXIS
     Dosage: 100MG PER DAY
     Route: 048
     Dates: start: 20130521
  15. QUININE SULPHATE [Concomitant]
     Indication: MUSCLE SPASMS
     Dosage: 300MG PER DAY
     Route: 048

REACTIONS (1)
  - Febrile neutropenia [Recovered/Resolved]
